FAERS Safety Report 6253029-5 (Version None)
Quarter: 2009Q3

REPORT INFORMATION
  Report Type: 
  Country: None (occurrence: None)
  Receive Date: 20090701
  Receipt Date: 20090619
  Transmission Date: 20100115
  Serious: Yes (Hospitalization)
  Sender: FDA-Public Use
  Company Number: JP-ASTRAZENECA-2009AP01395

PATIENT
  Age: 25972 Day
  Sex: Male

DRUGS (8)
  1. ZOLADEX [Suspect]
     Indication: PROSTATE CANCER
     Route: 058
     Dates: start: 20080707, end: 20081201
  2. MAGLAX [Concomitant]
     Indication: CONSTIPATION
     Route: 048
     Dates: start: 20090202, end: 20090310
  3. ALLOID G [Concomitant]
     Indication: GASTRITIS
     Route: 048
     Dates: start: 20090213, end: 20090219
  4. MEROPEN [Concomitant]
     Dates: start: 20090214
  5. RADIOTHERAPY [Concomitant]
     Indication: PROSTATE CANCER
     Dosage: 50 GY FOR WHOLE PELVIS AND 20 GY FOR PROSTATE CANCER
  6. RADIOTHERAPY [Concomitant]
     Indication: LARYNGEAL CANCER
     Dosage: 50 GY FOR WHOLE PELVIS AND 20 GY FOR PROSTATE CANCER
  7. RADIOTHERAPY [Concomitant]
     Dosage: 28 GY FOR LARYNGEAL CANCER
     Dates: start: 20090126, end: 20090216
  8. RADIOTHERAPY [Concomitant]
     Dosage: 28 GY FOR LARYNGEAL CANCER
     Dates: start: 20090126, end: 20090216

REACTIONS (1)
  - INTERSTITIAL LUNG DISEASE [None]
